FAERS Safety Report 15962235 (Version 1)
Quarter: 2019Q1

REPORT INFORMATION
  Report Type: Spontaneous
  Country: IT (occurrence: IT)
  Receive Date: 20190214
  Receipt Date: 20190214
  Transmission Date: 20190417
  Serious: Yes (Hospitalization)
  Sender: FDA-Public Use
  Company Number: IT-ASTRAZENECA-2019SE22090

PATIENT
  Age: 81 Year
  Sex: Female

DRUGS (7)
  1. LOBIVON [Concomitant]
     Active Substance: NEBIVOLOL HYDROCHLORIDE
     Dosage: 1.0DF UNKNOWN
     Route: 048
  2. CARDIOASPIRIN [Concomitant]
     Active Substance: ASPIRIN
     Dosage: 1.0DF UNKNOWN
     Route: 048
  3. TORVAST [Concomitant]
     Active Substance: ATORVASTATIN
     Dosage: 1.0DF UNKNOWN
     Route: 048
  4. HALDOL [Suspect]
     Active Substance: HALOPERIDOL
     Indication: SENILE DEMENTIA
     Route: 048
     Dates: start: 20180915, end: 20190105
  5. ENAPREN [Concomitant]
     Active Substance: ENALAPRIL MALEATE
     Dosage: 1.0DF UNKNOWN
     Route: 048
  6. NITRODERM [Concomitant]
     Active Substance: NITROGLYCERIN
     Dosage: 1.0DF UNKNOWN
  7. QUETIAPINE FUMARATE. [Suspect]
     Active Substance: QUETIAPINE FUMARATE
     Indication: SENILE DEMENTIA
     Route: 048
     Dates: start: 20180915, end: 20190105

REACTIONS (1)
  - Psychomotor skills impaired [Recovered/Resolved]

NARRATIVE: CASE EVENT DATE: 20190101
